FAERS Safety Report 7990473-X (Version None)
Quarter: 2011Q4

REPORT INFORMATION
  Report Type: 
  Country: None (occurrence: None)
  Receive Date: 20111219
  Receipt Date: 20101108
  Transmission Date: 20120403
  Serious: No
  Sender: FDA-Public Use
  Company Number: US-ASTRAZENECA-2010SE53402

PATIENT
  Age: 45 Year
  Sex: Male

DRUGS (1)
  1. CRESTOR [Suspect]
     Indication: BLOOD CHOLESTEROL INCREASED
     Dosage: DAILY FREQUENCY
     Route: 048

REACTIONS (2)
  - HEPATIC ENZYME INCREASED [None]
  - BLOOD GLUCOSE INCREASED [None]
